FAERS Safety Report 9292109 (Version 4)
Quarter: 2014Q4

REPORT INFORMATION
  Report Type: Spontaneous
  Country: DK (occurrence: DK)
  Receive Date: 20130516
  Receipt Date: 20141204
  Transmission Date: 20150529
  Serious: Yes (Other)
  Sender: FDA-Public Use
  Company Number: DK-ROCHE-1221574

PATIENT
  Age: 63 Year
  Sex: Female

DRUGS (5)
  1. FASLODEX [Suspect]
     Active Substance: FULVESTRANT
     Indication: BREAST CANCER RECURRENT
     Dosage: STYRKE: 250 MG/5 ML
     Route: 065
  2. NAVELBINE [Suspect]
     Active Substance: VINORELBINE TARTRATE
     Indication: BREAST CANCER
     Route: 065
     Dates: start: 2009
  3. HERCEPTIN [Suspect]
     Active Substance: TRASTUZUMAB
     Indication: BREAST CANCER METASTATIC
     Dosage: 2.5 ML IN BOTH THIGHS
     Route: 058
  4. CYCLOPHOSPHAMIDE. [Suspect]
     Active Substance: CYCLOPHOSPHAMIDE
     Indication: BREAST CANCER
     Route: 065
     Dates: start: 2009
  5. HERCEPTIN [Suspect]
     Active Substance: TRASTUZUMAB
     Indication: BREAST CANCER
     Dosage: MOST RECENT DOSE: MAR/2013
     Route: 042
     Dates: start: 2006, end: 201303

REACTIONS (9)
  - Visual impairment [Not Recovered/Not Resolved]
  - Ocular hypertension [Recovering/Resolving]
  - Vitreous detachment [Unknown]
  - Sensory disturbance [Unknown]
  - Pain in extremity [Unknown]
  - Arthralgia [Unknown]
  - Stress [Unknown]
  - Visual field defect [Not Recovered/Not Resolved]
  - Photopsia [Unknown]

NARRATIVE: CASE EVENT DATE: 20121011
